FAERS Safety Report 14740538 (Version 1)
Quarter: 2018Q2

REPORT INFORMATION
  Report Type: Spontaneous
  Country: US (occurrence: US)
  Receive Date: 20180410
  Receipt Date: 20180410
  Transmission Date: 20180711
  Serious: Yes (Other)
  Sender: FDA-Public Use
  Company Number: US-LUPIN PHARMACEUTICALS INC.-2018-02824

PATIENT
  Age: 15 Year
  Sex: Female

DRUGS (1)
  1. BUPROPION HYDROCHLORIDE EXTENDED-RELEASE TABLETS [Suspect]
     Active Substance: BUPROPION HYDROCHLORIDE
     Indication: PRODUCT USED FOR UNKNOWN INDICATION
     Dosage: 6.6 G, UNK (22 TABLETS)
     Route: 065

REACTIONS (12)
  - Abdominal pain [None]
  - Dizziness [None]
  - Tachycardia [None]
  - Chest discomfort [None]
  - Confusional state [None]
  - Unresponsive to stimuli [None]
  - Myoclonus [Recovered/Resolved]
  - Toxicity to various agents [Recovered/Resolved]
  - Epilepsy [Recovered/Resolved]
  - Prescription drug used without a prescription [None]
  - Intentional overdose [Recovered/Resolved]
  - Burning sensation [None]
